FAERS Safety Report 4365815-7 (Version None)
Quarter: 2004Q2

REPORT INFORMATION
  Report Type: 
  Country: None (occurrence: None)
  Receive Date: 20040521
  Receipt Date: 20040513
  Transmission Date: 20050107
  Serious: Yes (Other)
  Sender: FDA-Public Use
  Company Number: 2004213385DE

PATIENT
  Age: 63 Year
  Sex: Male

DRUGS (4)
  1. CABERGOLINE [Suspect]
     Indication: RESTLESS LEGS SYNDROME
     Dosage: UP TO 3 MG/DAY
  2. CELANCE (PRGOLIDE MESILATE)TABLET [Suspect]
     Indication: RESTLESS LEGS SYNDROME
  3. TILDINE (TILDINE) [Concomitant]
  4. LEVODOPA [Concomitant]

REACTIONS (4)
  - CARDIAC DISORDER [None]
  - HYPERHIDROSIS [None]
  - SLEEP ATTACKS [None]
  - SOMNOLENCE [None]
